FAERS Safety Report 25188496 (Version 1)
Quarter: 2025Q2

REPORT INFORMATION
  Report Type: Spontaneous
  Country: GB (occurrence: GB)
  Receive Date: 20250411
  Receipt Date: 20250411
  Transmission Date: 20250716
  Serious: Yes (Disabling, Other)
  Sender: TEVA
  Company Number: None

PATIENT
  Age: 22 Year
  Sex: Male

DRUGS (1)
  1. PALIPERIDONE [Suspect]
     Active Substance: PALIPERIDONE
     Indication: Product used for unknown indication
     Route: 065

REACTIONS (7)
  - Depressed mood [Recovered/Resolved]
  - Bisexuality [Recovered/Resolved]
  - Suicidal ideation [Unknown]
  - Mood altered [Recovered/Resolved]
  - Dysphemia [Recovered/Resolved]
  - Sedation complication [Recovered/Resolved]
  - Anger [Recovered/Resolved]

NARRATIVE: CASE EVENT DATE: 20240101
